FAERS Safety Report 25759680 (Version 2)
Quarter: 2025Q4

REPORT INFORMATION
  Report Type: Report from Study
  Country: EU (occurrence: EU)
  Receive Date: 20250904
  Receipt Date: 20251203
  Transmission Date: 20260117
  Serious: Yes (Other)
  Sender: BIOCODEX
  Company Number: EU-BIOCODEX2-2025001354

PATIENT
  Age: 27 Year
  Sex: Male
  Weight: 48 kg

DRUGS (14)
  1. STIRIPENTOL [Suspect]
     Active Substance: STIRIPENTOL
     Indication: Lennox-Gastaut syndrome
     Dosage: ONSET DOSE 20MG/KG, TARGET DOSE 40MG/KG
  2. STIRIPENTOL [Suspect]
     Active Substance: STIRIPENTOL
     Dosage: RAPIDLY TITRATED UP TO 1000 MG X 2 /DAY
  3. STIRIPENTOL [Suspect]
     Active Substance: STIRIPENTOL
     Dosage: 500 MG TWICE DAILY
  4. STIRIPENTOL [Suspect]
     Active Substance: STIRIPENTOL
  5. STIRIPENTOL [Suspect]
     Active Substance: STIRIPENTOL
  6. STIRIPENTOL [Suspect]
     Active Substance: STIRIPENTOL
  7. cenobamate 250 mg [Concomitant]
     Indication: Product used for unknown indication
     Dosage: 250 MG/KG
  8. cenobamate 250 mg [Concomitant]
     Dosage: 300 MG /DAY
  9. cenobamate 250 mg [Concomitant]
     Dosage: 250 MG DAILY
  10. cenobamate 250 mg [Concomitant]
  11. cenobamate 250 mg [Concomitant]
  12. cenobamate 250 mg [Concomitant]
  13. clobazam 5 mg [Concomitant]
     Indication: Product used for unknown indication
     Dosage: 5 MG X2/DIE / 5 MG TWICE DAILY
  14. clobazam 5 mg [Concomitant]

REACTIONS (3)
  - Off label use [Unknown]
  - Somnolence [Unknown]
  - Generalised tonic-clonic seizure [Recovered/Resolved]
